FAERS Safety Report 13688307 (Version 1)
Quarter: 2017Q2

REPORT INFORMATION
  Report Type: Spontaneous
  Country: US (occurrence: US)
  Receive Date: 20170626
  Receipt Date: 20170626
  Transmission Date: 20170830
  Serious: No
  Sender: FDA-Public Use
  Company Number: US-TEVA-750327ACC

PATIENT
  Age: 71 Year
  Sex: Female

DRUGS (6)
  1. SIMVASTATIN. [Concomitant]
     Active Substance: SIMVASTATIN
  2. CALCIUM [Concomitant]
     Active Substance: CALCIUM
     Dosage: 600 2X
  3. SYNTHROID [Concomitant]
     Active Substance: LEVOTHYROXINE SODIUM
  4. LAMOTRIGINE. [Suspect]
     Active Substance: LAMOTRIGINE
     Dosage: 200 MILLIGRAM DAILY;
     Route: 048
     Dates: start: 20161123, end: 20170228
  5. SYNTHROID [Concomitant]
     Active Substance: LEVOTHYROXINE SODIUM
  6. LISINOPRIL. [Concomitant]
     Active Substance: LISINOPRIL

REACTIONS (6)
  - Dysphagia [Unknown]
  - Blood thyroid stimulating hormone decreased [Recovered/Resolved]
  - Blood glucose increased [Not Recovered/Not Resolved]
  - Blood urea nitrogen/creatinine ratio increased [Not Recovered/Not Resolved]
  - Thyroxine increased [Not Recovered/Not Resolved]
  - Product substitution issue [Unknown]

NARRATIVE: CASE EVENT DATE: 20170113
